FAERS Safety Report 9000682 (Version 1)
Quarter: 2012Q4

REPORT INFORMATION
  Report Type: Spontaneous
  Country: GB (occurrence: None)
  Receive Date: 20121226
  Receipt Date: 20121226
  Transmission Date: 20130627
  Serious: Yes (Other)
  Sender: FDA-Public Use
  Company Number: DSA_61469_2012

PATIENT
  Age: 9 Year
  Sex: Female

DRUGS (8)
  1. ENALAPRIL MALEATE (ENALAPRIL MALEATE) [Suspect]
     Indication: PRODUCT USED FOR UNKNOWN INDICATION
     Route: 048
     Dates: start: 2009
  2. AMLODIPINE (AMLODIPINE) [Suspect]
     Indication: PRODUCT USED FOR UNKNOWN INDICATION
     Route: 048
     Dates: start: 2009
  3. ABACAVIR [Concomitant]
  4. ASPIRIN [Concomitant]
  5. LAMIVUDINE [Concomitant]
  6. NEVIRAPINE [Concomitant]
  7. ONE-ALPHA [Concomitant]
  8. VALACYCLOBIR HYDROCHLORIDE [Concomitant]

REACTIONS (1)
  - Gingival hyperplasia [None]
